FAERS Safety Report 14593435 (Version 1)
Quarter: 2018Q1

REPORT INFORMATION
  Report Type: Spontaneous
  Country: IT (occurrence: IT)
  Receive Date: 20180302
  Receipt Date: 20180302
  Transmission Date: 20180509
  Serious: Yes (Other)
  Sender: FDA-Public Use
  Company Number: IT-UCBSA-2018005648

PATIENT
  Age: 13 Year
  Sex: Female

DRUGS (17)
  1. MIDAZOLAM [Suspect]
     Active Substance: MIDAZOLAM HYDROCHLORIDE
     Indication: FEBRILE INFECTION-RELATED EPILEPSY SYNDROME
  2. LEVETIRACETAM. [Suspect]
     Active Substance: LEVETIRACETAM
     Indication: OFF LABEL USE
  3. PHENYTOIN. [Suspect]
     Active Substance: PHENYTOIN
     Indication: FEBRILE INFECTION-RELATED EPILEPSY SYNDROME
  4. LACOSAMIDE. [Suspect]
     Active Substance: LACOSAMIDE
     Indication: STATUS EPILEPTICUS
     Dosage: UNKNOWN DOSE
  5. LEVETIRACETAM. [Suspect]
     Active Substance: LEVETIRACETAM
     Indication: FEBRILE INFECTION-RELATED EPILEPSY SYNDROME
  6. MIDAZOLAM [Suspect]
     Active Substance: MIDAZOLAM HYDROCHLORIDE
     Indication: PARTIAL SEIZURES
     Dosage: UNKNOWN DOSE
  7. PROPOFOL. [Suspect]
     Active Substance: PROPOFOL
     Indication: STATUS EPILEPTICUS
  8. LACOSAMIDE. [Suspect]
     Active Substance: LACOSAMIDE
     Indication: FEBRILE INFECTION-RELATED EPILEPSY SYNDROME
  9. LACOSAMIDE. [Suspect]
     Active Substance: LACOSAMIDE
     Indication: OFF LABEL USE
  10. PROPOFOL. [Suspect]
     Active Substance: PROPOFOL
     Indication: PARTIAL SEIZURES
  11. MIDAZOLAM [Suspect]
     Active Substance: MIDAZOLAM HYDROCHLORIDE
     Indication: STATUS EPILEPTICUS
  12. PHENYTOIN. [Suspect]
     Active Substance: PHENYTOIN
     Indication: STATUS EPILEPTICUS
     Dosage: UNKNOWN DOSE
  13. LEVETIRACETAM. [Suspect]
     Active Substance: LEVETIRACETAM
     Indication: STATUS EPILEPTICUS
     Dosage: UNKNOWN DOSE
  14. PROPOFOL. [Suspect]
     Active Substance: PROPOFOL
     Indication: FEBRILE INFECTION-RELATED EPILEPSY SYNDROME
  15. PROPOFOL. [Suspect]
     Active Substance: PROPOFOL
     Dosage: UNKNOWN DOSE
     Route: 040
  16. HUMAN IMMUNOGLOBULIN [Suspect]
     Active Substance: HUMAN IMMUNOGLOBULIN G
     Indication: STATUS EPILEPTICUS
     Dosage: UNKNOWN DOSE
     Route: 042
  17. PHENOBARBITAL. [Suspect]
     Active Substance: PHENOBARBITAL
     Indication: STATUS EPILEPTICUS
     Dosage: UNKNOWN DOSE

REACTIONS (2)
  - Off label use [Unknown]
  - Multiple-drug resistance [Recovered/Resolved]
